FAERS Safety Report 16153627 (Version 1)
Quarter: 2019Q2

REPORT INFORMATION
  Report Type: Spontaneous
  Country: GB (occurrence: GB)
  Receive Date: 20190403
  Receipt Date: 20190403
  Transmission Date: 20190711
  Serious: Yes (Hospitalization)
  Sender: FDA-Public Use
  Company Number: GB-ACCORD-118009

PATIENT
  Age: 64 Year
  Sex: Male

DRUGS (15)
  1. ATENOLOL. [Concomitant]
     Active Substance: ATENOLOL
  2. FESOTERODINE [Concomitant]
     Active Substance: FESOTERODINE
  3. OMEPRAZOLE. [Concomitant]
     Active Substance: OMEPRAZOLE
  4. MORPHINE SULPHATE [Concomitant]
     Active Substance: MORPHINE SULFATE
  5. RAMIPRIL. [Suspect]
     Active Substance: RAMIPRIL
     Indication: HYPERTENSION
     Route: 048
     Dates: end: 20190122
  6. ISOSORBIDE MONONITRATE. [Concomitant]
     Active Substance: ISOSORBIDE MONONITRATE
  7. MONTELUKAST [Concomitant]
     Active Substance: MONTELUKAST SODIUM
  8. METFORMIN [Concomitant]
     Active Substance: METFORMIN HYDROCHLORIDE
  9. PARACETAMOL [Concomitant]
     Active Substance: ACETAMINOPHEN
  10. GABAPENTIN. [Concomitant]
     Active Substance: GABAPENTIN
  11. BACLOFEN. [Concomitant]
     Active Substance: BACLOFEN
  12. ROSUVASTATIN. [Suspect]
     Active Substance: ROSUVASTATIN
     Indication: BLOOD CHOLESTEROL INCREASED
     Dosage: AT NIGHT
     Route: 048
     Dates: end: 20190122
  13. TAMSULOSIN HYDROCHLORIDE. [Concomitant]
     Active Substance: TAMSULOSIN HYDROCHLORIDE
  14. GLICLAZIDE [Concomitant]
     Active Substance: GLICLAZIDE
  15. CLOPIDOGREL [Concomitant]
     Active Substance: CLOPIDOGREL BISULFATE

REACTIONS (2)
  - Hyponatraemia [Not Recovered/Not Resolved]
  - Liver function test increased [Not Recovered/Not Resolved]

NARRATIVE: CASE EVENT DATE: 20190122
